FAERS Safety Report 9130991 (Version 1)
Quarter: 2013Q1

REPORT INFORMATION
  Report Type: Spontaneous
  Country: CA (occurrence: CA)
  Receive Date: 20130301
  Receipt Date: 20130301
  Transmission Date: 20140127
  Serious: Yes (Other)
  Sender: FDA-Public Use
  Company Number: CA-PFIZER INC-2012227323

PATIENT
  Age: 44 Year
  Sex: Male
  Weight: 80.7 kg

DRUGS (2)
  1. CHAMPIX [Suspect]
     Indication: SMOKING CESSATION THERAPY
     Dosage: 0.5 MG, 2X/DAY
     Route: 048
  2. CHAMPIX [Suspect]
     Dosage: 1.0 MG, 2X/DAY
     Route: 048

REACTIONS (11)
  - Suicidal ideation [Recovered/Resolved]
  - Depression [Unknown]
  - Violence-related symptom [Recovered/Resolved]
  - Agitation [Recovering/Resolving]
  - Feeling guilty [Recovered/Resolved]
  - Nightmare [Recovered/Resolved]
  - Anger [Recovered/Resolved]
  - Apathy [Unknown]
  - Mood altered [Unknown]
  - Tobacco withdrawal symptoms [Unknown]
  - Treatment noncompliance [Unknown]
